FAERS Safety Report 9821084 (Version 2)
Quarter: 2014Q2

REPORT INFORMATION
  Report Type: Spontaneous
  Country: AU (occurrence: AU)
  Receive Date: 20140116
  Receipt Date: 20140507
  Transmission Date: 20141212
  Serious: Yes (Hospitalization)
  Sender: FDA-Public Use
  Company Number: AU-ABBVIE-14P-008-1187614-00

PATIENT
  Sex: Female

DRUGS (1)
  1. HUMIRA [Suspect]
     Indication: CROHN^S DISEASE

REACTIONS (7)
  - Injection site inflammation [Recovering/Resolving]
  - Injection site infection [Recovering/Resolving]
  - Crohn^s disease [Recovering/Resolving]
  - Anal abscess [Recovering/Resolving]
  - Arthropod bite [Recovering/Resolving]
  - Impaired healing [Recovering/Resolving]
  - Urticaria [Recovering/Resolving]
